FAERS Safety Report 7506208-0 (Version None)
Quarter: 2011Q2

REPORT INFORMATION
  Report Type: 
  Country: None (occurrence: None)
  Receive Date: 20110526
  Receipt Date: 20110517
  Transmission Date: 20111010
  Serious: No
  Sender: FDA-Public Use
  Company Number: DE-ELI_LILLY_AND_COMPANY-DE201104005636

PATIENT
  Age: 69 Year
  Sex: Male

DRUGS (2)
  1. CIALIS [Suspect]
     Dosage: 20 MG, UNK
  2. CIALIS [Suspect]
     Dosage: 20 MG, UNK

REACTIONS (2)
  - DRUG INEFFECTIVE [None]
  - VISUAL ACUITY REDUCED [None]
